FAERS Safety Report 9414753 (Version 1)
Quarter: 2013Q3

REPORT INFORMATION
  Report Type: Report from Study
  Country: BR (occurrence: BR)
  Receive Date: 20130723
  Receipt Date: 20130723
  Transmission Date: 20140515
  Serious: Yes (Hospitalization, Other)
  Sender: FDA-Public Use
  Company Number: PHHY2013BR077756

PATIENT
  Sex: Female
  Weight: 64 kg

DRUGS (5)
  1. TEGRETOL [Suspect]
     Indication: TOOTH INFECTION
     Dosage: 1 DF, BID (IN THE MORNING AND AT NIGHT)
     Route: 048
  2. ROSUVAS [Concomitant]
     Dosage: UNK UKN, UNK
  3. BRILINTA [Concomitant]
     Dosage: UNK UKN, UNK
  4. OMEPRAZOL A [Concomitant]
     Dosage: 20 UKN, UNK
  5. MONOCORDIL [Concomitant]
     Dosage: UNK UKN, UNK

REACTIONS (3)
  - Cerebrovascular accident [Recovered/Resolved]
  - Fall [Recovering/Resolving]
  - Femur fracture [Recovering/Resolving]
